FAERS Safety Report 11301613 (Version 1)
Quarter: 2015Q3

REPORT INFORMATION
  Report Type: Spontaneous
  Country: US (occurrence: US)
  Receive Date: 20150722
  Receipt Date: 20150722
  Transmission Date: 20151125
  Serious: No
  Sender: FDA-Public Use
  Company Number: US-ELI_LILLY_AND_COMPANY-US200907001949

PATIENT
  Age: 6 Year
  Sex: Female

DRUGS (1)
  1. HUMATROPE [Suspect]
     Active Substance: SOMATROPIN
     Dosage: 4 MG, DAILY (1/D)

REACTIONS (4)
  - Incorrect product storage [Recovered/Resolved]
  - Medication error [Unknown]
  - Intentional product misuse [Recovered/Resolved]
  - Intentional product misuse [Unknown]
